FAERS Safety Report 19473718 (Version 1)
Quarter: 2021Q2

REPORT INFORMATION
  Report Type: Spontaneous
  Country: US (occurrence: US)
  Receive Date: 20210629
  Receipt Date: 20210629
  Transmission Date: 20210717
  Serious: No
  Sender: FDA-Public Use
  Company Number: US-GLAXOSMITHKLINE-2020211598

PATIENT
  Sex: Male

DRUGS (1)
  1. ADVIL [Suspect]
     Active Substance: IBUPROFEN
     Dosage: 600 MG (3 PILLS AT A TIME)

REACTIONS (3)
  - Product physical issue [Unknown]
  - Poor quality product administered [Unknown]
  - Product use issue [Unknown]
